FAERS Safety Report 13940828 (Version 2)
Quarter: 2017Q3

REPORT INFORMATION
  Report Type: Spontaneous
  Country: US (occurrence: US)
  Receive Date: 20170906
  Receipt Date: 20170911
  Transmission Date: 20171127
  Serious: No
  Sender: FDA-Public Use
  Company Number: US-BAYER-2017-168074

PATIENT
  Sex: Male

DRUGS (1)
  1. MIRALAX [Suspect]
     Active Substance: POLYETHYLENE GLYCOL 3350
     Indication: GASTROINTESTINAL DISORDER
     Dosage: 1-3 CAPFULS
     Route: 048
     Dates: start: 201411

REACTIONS (7)
  - Product use issue [None]
  - Drug ineffective [None]
  - Inappropriate prescribing [None]
  - Blister [None]
  - Overdose [None]
  - Feeling abnormal [None]
  - Diarrhoea [None]
